FAERS Safety Report 8460162-6 (Version None)
Quarter: 2012Q2

REPORT INFORMATION
  Report Type: 
  Country: None (occurrence: None)
  Receive Date: 20120323
  Receipt Date: 20110909
  Transmission Date: 20120825
  Serious: Yes (Hospitalization)
  Sender: FDA-Public Use
  Company Number: 163-21880-11091417

PATIENT
  Age: 44 Year
  Sex: Male

DRUGS (6)
  1. ZOFRAN [Concomitant]
  2. REVLIMID [Suspect]
     Indication: AMYLOIDOSIS
     Dosage: 5 MG, 28 CAPS, PO
     Route: 048
     Dates: start: 20110804
  3. OMEPRAZOLE [Concomitant]
  4. RENAL MULTIVITAMIN FORMULA (MULTIVITAMINS) [Concomitant]
  5. RENAGEL [Concomitant]
  6. COUMADIN [Concomitant]

REACTIONS (3)
  - BODY TEMPERATURE INCREASED [None]
  - RASH GENERALISED [None]
  - WHITE BLOOD CELL COUNT DECREASED [None]
